FAERS Safety Report 14857111 (Version 1)
Quarter: 2018Q2

REPORT INFORMATION
  Report Type: Spontaneous
  Country: US (occurrence: US)
  Receive Date: 20180507
  Receipt Date: 20180507
  Transmission Date: 20180711
  Serious: No
  Sender: FDA-Public Use
  Company Number: US-B.I. PHARMACEUTICALS,INC./RIDGEFIELD-2018-BI-024106

PATIENT
  Sex: Female

DRUGS (6)
  1. STIOLTO RESPIMAT [Suspect]
     Active Substance: OLODATEROL HYDROCHLORIDE\TIOTROPIUM BROMIDE MONOHYDRATE
     Indication: EMPHYSEMA
     Dosage: ;  FORM STRENGTH: 2.5 MCG; ACTION(S) TAKEN WITH PRODUCT: DRUG WITHDRAWN
     Route: 055
     Dates: start: 201712, end: 201803
  2. VENTOLIN [Concomitant]
     Active Substance: ALBUTEROL SULFATE
     Indication: EMPHYSEMA
     Dosage: ;
     Route: 055
  3. VITAMINS NOS [Concomitant]
     Active Substance: VITAMINS
     Indication: PRODUCT USED FOR UNKNOWN INDICATION
     Route: 048
  4. OMEPRAZOLE. [Concomitant]
     Active Substance: OMEPRAZOLE
     Indication: BARRETT^S OESOPHAGUS
  5. VALIUM [Concomitant]
     Active Substance: DIAZEPAM
     Indication: INSOMNIA
     Dosage: ;  FORM STRENGTH: 5MG
     Route: 048
  6. OMEPRAZOLE. [Concomitant]
     Active Substance: OMEPRAZOLE
     Indication: HIATUS HERNIA
     Dosage: ;  FORM STRENGTH: 50MG
     Route: 048

REACTIONS (2)
  - Chest discomfort [Not Recovered/Not Resolved]
  - Dyspnoea exertional [Not Recovered/Not Resolved]
